FAERS Safety Report 5859966-5 (Version None)
Quarter: 2008Q3

REPORT INFORMATION
  Report Type: 
  Country: None (occurrence: None)
  Receive Date: 20080827
  Receipt Date: 20080818
  Transmission Date: 20090109
  Serious: Yes (Other)
  Sender: FDA-Public Use
  Company Number: US-ALLERGAN-0810255US

PATIENT
  Sex: Female

DRUGS (2)
  1. BOTOX [Suspect]
     Indication: HYPERHIDROSIS
     Dosage: 60 UNITS, SINGLE
     Dates: start: 20080725, end: 20080725
  2. BOTOX [Suspect]
     Dosage: 40 UNITS, SINGLE
     Dates: start: 20080731, end: 20080731

REACTIONS (2)
  - EAR INFECTION [None]
  - FACIAL PALSY [None]
